FAERS Safety Report 7488701-2 (Version None)
Quarter: 2011Q2

REPORT INFORMATION
  Report Type: 
  Country: None (occurrence: None)
  Receive Date: 20110518
  Receipt Date: 20110512
  Transmission Date: 20111010
  Serious: Yes (Hospitalization)
  Sender: FDA-Public Use
  Company Number: B0719720A

PATIENT
  Sex: Female

DRUGS (3)
  1. ASPIRIN [Suspect]
     Dosage: 100MG PER DAY
     Dates: start: 20100323, end: 20110322
  2. MYLERAN [Suspect]
     Indication: THROMBOCYTOSIS
     Dosage: 2MG PER DAY
     Route: 048
     Dates: start: 20100323, end: 20110322
  3. SOLOSA [Concomitant]

REACTIONS (2)
  - HAEMATEMESIS [None]
  - MELAENA [None]
